FAERS Safety Report 9745193 (Version 3)
Quarter: 2014Q2

REPORT INFORMATION
  Report Type: Spontaneous
  Country: US (occurrence: US)
  Receive Date: 20131211
  Receipt Date: 20140409
  Transmission Date: 20141212
  Serious: No
  Sender: FDA-Public Use
  Company Number: US-PFIZER INC-2013352810

PATIENT
  Age: 70 Year
  Sex: Female
  Weight: 81.63 kg

DRUGS (4)
  1. NEURONTIN [Suspect]
     Indication: PRURITUS
     Dosage: 300 MG, UNK
     Route: 048
  2. NEURONTIN [Suspect]
     Indication: BURNING SENSATION
  3. NEURONTIN [Suspect]
     Indication: PRURITUS
     Dosage: 600 MG, 2X/DAY
     Route: 048
     Dates: end: 20131206
  4. NEURONTIN [Suspect]
     Indication: BURNING SENSATION

REACTIONS (3)
  - Drug ineffective [Unknown]
  - Paraesthesia [Unknown]
  - Dysstasia [Unknown]
